FAERS Safety Report 10425322 (Version 4)
Quarter: 2015Q2

REPORT INFORMATION
  Report Type: Spontaneous
  Country: US (occurrence: None)
  Receive Date: 20140722
  Receipt Date: 20150420
  Transmission Date: 20150821
  Serious: No
  Sender: FDA-Public Use
  Company Number: AEGR000487

PATIENT
  Age: 59 Year
  Sex: Male
  Weight: 90.7 kg

DRUGS (8)
  1. CARVEDILOL. [Concomitant]
     Active Substance: CARVEDILOL
  2. ZETIA [Concomitant]
     Active Substance: EZETIMIBE
  3. VITAMIN E [Concomitant]
     Active Substance: .ALPHA.-TOCOPHEROL
  4. CRESTOR [Concomitant]
     Active Substance: ROSUVASTATIN CALCIUM
  5. OMEGA 3-6-9 (FISH OIL, TOCOPHEROL) [Concomitant]
  6. JUXTAPID [Suspect]
     Active Substance: LOMITAPIDE MESYLATE
     Indication: TYPE IIA HYPERLIPIDAEMIA
     Route: 048
     Dates: start: 20140502
  7. FENOFIBRATE. [Concomitant]
     Active Substance: FENOFIBRATE
  8. ASPIRIN (ACETYLSALICYLIC ACID) [Concomitant]
     Active Substance: ASPIRIN

REACTIONS (6)
  - Diarrhoea [None]
  - Abdominal pain upper [None]
  - Gastrointestinal disorder [None]
  - Weight fluctuation [None]
  - Weight decreased [None]
  - Hepatic enzyme increased [None]

NARRATIVE: CASE EVENT DATE: 201404
